FAERS Safety Report 18033160 (Version 3)
Quarter: 2020Q3

REPORT INFORMATION
  Report Type: Report from Study
  Country: US (occurrence: US)
  Receive Date: 20200716
  Receipt Date: 20200918
  Transmission Date: 20201103
  Serious: Yes (Hospitalization, Other)
  Sender: FDA-Public Use
  Company Number: US-GILEAD-2020-0483144

PATIENT
  Age: 42 Year
  Sex: Female

DRUGS (12)
  1. TRIKAFTA [Concomitant]
     Active Substance: ELEXACAFTOR\IVACAFTOR\TEZACAFTOR
     Dosage: 2 ORANGE TABLETS IN THE MORNING AND 1 BLUE TABLET IN THE EVENING
  2. MAGNESIUM OXIDE. [Concomitant]
     Active Substance: MAGNESIUM OXIDE
  3. AZTREONAM LYSINE [Suspect]
     Active Substance: AZTREONAM LYSINE
     Indication: CYSTIC FIBROSIS LUNG
     Dosage: 75 MG, TID; 28 DAYS ON AND 28 DAYS OFF
     Route: 055
  4. GABAPENTIN. [Concomitant]
     Active Substance: GABAPENTIN
  5. ALBUTEROL SULFATE. [Concomitant]
     Active Substance: ALBUTEROL SULFATE
  6. TRAZODONE HYDROCHLORIDE. [Concomitant]
     Active Substance: TRAZODONE HYDROCHLORIDE
  7. CLOMIPRAMINE HYDROCHLORIDE. [Concomitant]
     Active Substance: CLOMIPRAMINE HYDROCHLORIDE
  8. ZENPEP [Concomitant]
     Active Substance: PANCRELIPASE AMYLASE\PANCRELIPASE LIPASE\PANCRELIPASE PROTEASE
  9. HYPER?SAL 7 % VIAL?NEB [Concomitant]
  10. COLISTIN SULFATE [Concomitant]
     Active Substance: COLISTIN SULFATE
  11. KLONOPIN [Concomitant]
     Active Substance: CLONAZEPAM
  12. PULMOZYME [Concomitant]
     Active Substance: DORNASE ALFA

REACTIONS (11)
  - Condition aggravated [Not Recovered/Not Resolved]
  - Cystic fibrosis [Unknown]
  - Depression [Unknown]
  - Pneumonia [Unknown]
  - Anxiety [Unknown]
  - Chest discomfort [Not Recovered/Not Resolved]
  - Lung disorder [Not Recovered/Not Resolved]
  - Drug intolerance [Not Recovered/Not Resolved]
  - Asthenia [Not Recovered/Not Resolved]
  - Sputum retention [Not Recovered/Not Resolved]
  - Limb injury [Unknown]

NARRATIVE: CASE EVENT DATE: 202005
